FAERS Safety Report 24617607 (Version 1)
Quarter: 2024Q4

REPORT INFORMATION
  Report Type: Spontaneous
  Country: FR (occurrence: FR)
  Receive Date: 20241114
  Receipt Date: 20241114
  Transmission Date: 20250114
  Serious: Yes (Other)
  Sender: RANBAXY
  Company Number: FR-SUN PHARMACEUTICAL INDUSTRIES LTD-2024RR-478473

PATIENT
  Age: 2 Month
  Sex: Female

DRUGS (4)
  1. METOPROLOL [Suspect]
     Active Substance: METOPROLOL
     Indication: Atrial fibrillation
     Dosage: 50 MILLIGRAM, DAILY
     Route: 064
     Dates: start: 20240315, end: 20240725
  2. METHADONE [Suspect]
     Active Substance: METHADONE HYDROCHLORIDE
     Indication: Drug dependence
     Dosage: 10 MILLIGRAM, DAILY
     Route: 064
     Dates: start: 20231230, end: 20240725
  3. XARELTO [Suspect]
     Active Substance: RIVAROXABAN
     Indication: Heparin-induced thrombocytopenia
     Dosage: UNK
     Route: 064
     Dates: start: 20231230, end: 20240215
  4. ARIXTRA [Suspect]
     Active Substance: FONDAPARINUX SODIUM
     Indication: Heparin-induced thrombocytopenia
     Dosage: 5 MILLIGRAM, DAILY
     Route: 064
     Dates: start: 20240315, end: 20240725

REACTIONS (4)
  - Maternal exposure during pregnancy [Recovered/Resolved]
  - Premature baby [Recovered/Resolved]
  - Foetal growth restriction [Recovered/Resolved]
  - Withdrawal syndrome [Recovered/Resolved]

NARRATIVE: CASE EVENT DATE: 20240725
